FAERS Safety Report 23155924 (Version 3)
Quarter: 2023Q4

REPORT INFORMATION
  Report Type: Spontaneous
  Country: IT (occurrence: IT)
  Receive Date: 20231107
  Receipt Date: 20231116
  Transmission Date: 20240110
  Serious: Yes (Hospitalization)
  Sender: FDA-Public Use
  Company Number: None

PATIENT
  Age: 67 Year
  Sex: Male
  Weight: 67 kg

DRUGS (3)
  1. FILGRASTIM [Suspect]
     Active Substance: FILGRASTIM
     Dosage: 30, UNITS NOT PROVIDED
     Route: 058
     Dates: start: 20230512, end: 20230517
  2. DOXORUBICIN [Concomitant]
     Active Substance: DOXORUBICIN
     Indication: Malignant fibrous histiocytoma
     Dosage: 45 MG
     Route: 042
     Dates: start: 20230508, end: 20230510
  3. CISPLATIN [Concomitant]
     Active Substance: CISPLATIN
     Indication: Malignant fibrous histiocytoma
     Dosage: 60 MG DT DAYS 1-3 Q21
     Route: 042
     Dates: start: 20230508, end: 20230510

REACTIONS (6)
  - Vomiting [Recovered/Resolved]
  - Asthenia [Recovered/Resolved]
  - Diarrhoea [Recovering/Resolving]
  - Pyrexia [Recovered/Resolved]
  - Leukopenia [Recovered/Resolved]
  - Thrombocytopenia [Recovered/Resolved]

NARRATIVE: CASE EVENT DATE: 20230518
